FAERS Safety Report 5676428-9 (Version None)
Quarter: 2008Q1

REPORT INFORMATION
  Report Type: 
  Country: None (occurrence: None)
  Receive Date: 20080321
  Receipt Date: 20080312
  Transmission Date: 20080703
  Serious: Yes (Other)
  Sender: FDA-Public Use
  Company Number: US-PFIZER INC-2008024450

PATIENT
  Sex: Female
  Weight: 127.9 kg

DRUGS (6)
  1. CHANTIX [Suspect]
     Indication: SMOKING CESSATION THERAPY
  2. WELLBUTRIN [Concomitant]
     Dates: start: 20060101
  3. EFFEXOR [Concomitant]
     Dates: start: 20060101
  4. ALBUTEROL [Concomitant]
     Dates: start: 20060101
  5. ADVAIR DISKUS 100/50 [Concomitant]
  6. LISINOPRIL [Concomitant]

REACTIONS (2)
  - ACTIVITIES OF DAILY LIVING IMPAIRED [None]
  - HYPERSOMNIA [None]
